FAERS Safety Report 10027029 (Version 1)
Quarter: 2014Q1

REPORT INFORMATION
  Report Type: Spontaneous
  Country: US (occurrence: US)
  Receive Date: 20140321
  Receipt Date: 20140321
  Transmission Date: 20141002
  Serious: Yes (Hospitalization, Other)
  Sender: FDA-Public Use
  Company Number: US-ACCORD-022018

PATIENT
  Age: 34 Year
  Sex: Female

DRUGS (4)
  1. ETOPOSIDE [Suspect]
     Indication: GESTATIONAL TROPHOBLASTIC TUMOUR
     Dosage: Q12 HOUR X 6 WITH 3 HOURS INFUSION
     Route: 042
  2. MESNA [Suspect]
     Indication: GESTATIONAL TROPHOBLASTIC TUMOUR
     Dosage: DAYS 1 - 4.?6 HOUR INFUSION.
     Route: 042
  3. IFOSFAMIDE [Suspect]
     Indication: GESTATIONAL TROPHOBLASTIC TUMOUR
     Dosage: DAYS 1 - 4.?6 HOUR INFUSION.
     Route: 042
  4. CARBOPLATIN [Suspect]
     Indication: GESTATIONAL TROPHOBLASTIC TUMOUR
     Dosage: DAYS 1 -4.?4 HOUR INFUSION.
     Route: 042

REACTIONS (3)
  - Stomatitis [Unknown]
  - Syncope [Unknown]
  - Febrile neutropenia [Unknown]
